FAERS Safety Report 9643539 (Version 2)
Quarter: 2013Q4

REPORT INFORMATION
  Report Type: Spontaneous
  Country: IT (occurrence: None)
  Receive Date: 20131022
  Receipt Date: 20131030
  Transmission Date: 20140711
  Serious: Yes (Other)
  Sender: FDA-Public Use
  Company Number: AUR-APL-2013-08705

PATIENT
  Age: 64 Year
  Sex: Female

DRUGS (4)
  1. RAMIPRIL [Suspect]
     Indication: PRODUCT USED FOR UNKNOWN INDICATION
     Dates: start: 20130101, end: 20130728
  2. CARDIOASPIRIN (ACETYLSALICYLIC ACID) [Concomitant]
  3. CARDICOR (BISOOOOOPROLOL FUMARATE) [Concomitant]
  4. TAPAZOLE (THIANAZOLE) [Concomitant]

REACTIONS (3)
  - Lip pain [None]
  - Lip swelling [None]
  - Blood pressure systolic increased [None]
